FAERS Safety Report 5413057-6 (Version None)
Quarter: 2007Q3

REPORT INFORMATION
  Report Type: 
  Country: None (occurrence: None)
  Receive Date: 20070713
  Receipt Date: 20070322
  Transmission Date: 20080115
  Serious: No
  Sender: FDA-Public Use
  Company Number: 2007SP000872

PATIENT
  Age: 63 Year
  Sex: Female
  Weight: 68.0396 kg

DRUGS (6)
  1. LUNESTA [Suspect]
     Indication: INSOMNIA
     Dosage: 1 MG; HS; ORAL; 2 MG; HS; ORAL; 3 MG; HS; ORAL
     Route: 048
     Dates: start: 20070201, end: 20070201
  2. LUNESTA [Suspect]
     Indication: INSOMNIA
     Dosage: 1 MG; HS; ORAL; 2 MG; HS; ORAL; 3 MG; HS; ORAL
     Route: 048
     Dates: start: 20070201, end: 20070301
  3. LUNESTA [Suspect]
     Indication: INSOMNIA
     Dosage: 1 MG; HS; ORAL; 2 MG; HS; ORAL; 3 MG; HS; ORAL
     Route: 048
     Dates: start: 20070301, end: 20070316
  4. COZAAR [Concomitant]
  5. ATORVASTATIN CALCIUM [Concomitant]
  6. VITAMIN CAP [Concomitant]

REACTIONS (6)
  - COLITIS [None]
  - DRUG INEFFECTIVE [None]
  - INSOMNIA [None]
  - MEMORY IMPAIRMENT [None]
  - SOMNOLENCE [None]
  - STRESS [None]
